FAERS Safety Report 5578158-0 (Version None)
Quarter: 2007Q4

REPORT INFORMATION
  Report Type: 
  Country: None (occurrence: None)
  Receive Date: 20071227
  Receipt Date: 20071218
  Transmission Date: 20080405
  Serious: Yes (Life-Threatening, Hospitalization)
  Sender: FDA-Public Use
  Company Number: 2007002476

PATIENT
  Age: 75 Year
  Sex: Male

DRUGS (10)
  1. ERLOTINIB (ERLOTINIB HCL) (TABLET) (ERLOTINIB HCL) [Suspect]
     Indication: BRONCHIAL CARCINOMA
     Dosage: (100 MG, QD), ORAL
     Route: 048
     Dates: start: 20070630
  2. MORPHINE [Concomitant]
  3. PREDNISONE [Concomitant]
  4. NOVAMINSULFON [Concomitant]
  5. NOVAMINSULFON [Concomitant]
  6. ZOMETA [Concomitant]
  7. DICODID (HYDROCODONE BITARTRATE) [Concomitant]
  8. FORADIL [Concomitant]
  9. SPIRIVA [Concomitant]
  10. PANTOZOL (PANTOPRAZOLE SODIUM) [Concomitant]

REACTIONS (3)
  - GENERAL PHYSICAL CONDITION ABNORMAL [None]
  - PNEUMOTHORAX [None]
  - SOFT TISSUE DISORDER [None]
